FAERS Safety Report 19641006 (Version 4)
Quarter: 2022Q2

REPORT INFORMATION
  Report Type: Report from Study
  Country: US (occurrence: US)
  Receive Date: 20210730
  Receipt Date: 20220520
  Transmission Date: 20220721
  Serious: Yes (Other)
  Sender: FDA-Public Use
  Company Number: US-ASTELLAS-2018US050973

PATIENT
  Age: 83 Year
  Sex: Male

DRUGS (3)
  1. ENZALUTAMIDE [Suspect]
     Active Substance: ENZALUTAMIDE
     Indication: Hormone-refractory prostate cancer
     Route: 048
     Dates: start: 20180824
  2. ENZALUTAMIDE [Suspect]
     Active Substance: ENZALUTAMIDE
     Dosage: UNK UNK, UNKNOWN FREQ.
     Route: 048
  3. ENZALUTAMIDE [Suspect]
     Active Substance: ENZALUTAMIDE
     Indication: Hormone-refractory prostate cancer
     Route: 048

REACTIONS (26)
  - Abdominal pain [Unknown]
  - Hyperhidrosis [Unknown]
  - Asthenia [Unknown]
  - Weight decreased [Unknown]
  - Hot flush [Unknown]
  - Testicular atrophy [Unknown]
  - Tooth loss [Recovering/Resolving]
  - Onychomadesis [Unknown]
  - Nail disorder [Not Recovered/Not Resolved]
  - Micturition frequency decreased [Unknown]
  - Pain of skin [Not Recovered/Not Resolved]
  - Constipation [Unknown]
  - Musculoskeletal stiffness [Not Recovered/Not Resolved]
  - Cough [Not Recovered/Not Resolved]
  - Nail growth abnormal [Not Recovered/Not Resolved]
  - Balance disorder [Unknown]
  - Gingival bleeding [Unknown]
  - Fatigue [Recovering/Resolving]
  - Pruritus [Not Recovered/Not Resolved]
  - Hot flush [Recovering/Resolving]
  - Pigmentation disorder [Recovering/Resolving]
  - Initial insomnia [Unknown]
  - Hyperhidrosis [Unknown]
  - Hot flush [Unknown]
  - Asthenia [Recovering/Resolving]
  - Product availability issue [Unknown]

NARRATIVE: CASE EVENT DATE: 20181101
